FAERS Safety Report 18694745 (Version 1)
Quarter: 2021Q1

REPORT INFORMATION
  Report Type: Spontaneous
  Country: US (occurrence: US)
  Receive Date: 20210103
  Receipt Date: 20210103
  Transmission Date: 20210419
  Serious: Yes (Hospitalization)
  Sender: FDA-Public Use
  Company Number: None

PATIENT
  Age: 73 Year
  Sex: Male

DRUGS (13)
  1. ATENOLOL. [Concomitant]
     Active Substance: ATENOLOL
  2. METH OCARBAM [Concomitant]
  3. DOXYCYCL HYC [Concomitant]
  4. PROLIA [Concomitant]
     Active Substance: DENOSUMAB
  5. CALCIUM [Concomitant]
     Active Substance: CALCIUM
  6. FINASTERIDE. [Concomitant]
     Active Substance: FINASTERIDE
  7. FUROSEMIDE. [Concomitant]
     Active Substance: FUROSEMIDE
  8. OMEPRAZOLE. [Concomitant]
     Active Substance: OMEPRAZOLE
  9. AZELASTINE. [Concomitant]
     Active Substance: AZELASTINE HYDROCHLORIDE
  10. POT CHLORIDE [Concomitant]
     Active Substance: POTASSIUM CHLORIDE
  11. TAMSULOSIN [Concomitant]
     Active Substance: TAMSULOSIN
  12. CEFUROXIME. [Concomitant]
     Active Substance: CEFUROXIME
  13. FORTEO [Suspect]
     Active Substance: TERIPARATIDE
     Indication: OSTEOPOROTIC FRACTURE
     Route: 058
     Dates: start: 20200817

REACTIONS (4)
  - Asthenia [None]
  - Lethargy [None]
  - Neoplasm malignant [None]
  - Blood calcium increased [None]

NARRATIVE: CASE EVENT DATE: 20201225
